FAERS Safety Report 4790420-8 (Version None)
Quarter: 2005Q4

REPORT INFORMATION
  Report Type: 
  Country: None (occurrence: None)
  Receive Date: 20051006
  Receipt Date: 20051003
  Transmission Date: 20060501
  Serious: Yes (Other)
  Sender: FDA-Public Use
  Company Number: IT-SANOFI-SYNTHELABO-A06200500236

PATIENT
  Sex: Male

DRUGS (3)
  1. ELOXATIN [Suspect]
     Indication: METASTATIC GASTRIC CANCER
     Route: 041
     Dates: start: 20041201, end: 20050901
  2. FLUOROURACIL [Concomitant]
     Indication: METASTATIC GASTRIC CANCER
     Dosage: UNK
     Route: 041
  3. FOLIC [Concomitant]
     Indication: METASTATIC GASTRIC CANCER
     Dosage: UNK
     Route: 041

REACTIONS (1)
  - RENAL FAILURE ACUTE [None]
